FAERS Safety Report 11081577 (Version 1)
Quarter: 2015Q2

REPORT INFORMATION
  Report Type: Spontaneous
  Country: DE (occurrence: DE)
  Receive Date: 20150501
  Receipt Date: 20150501
  Transmission Date: 20150821
  Serious: Yes (Hospitalization)
  Sender: FDA-Public Use
  Company Number: DE-TEVA-557409GER

PATIENT
  Age: 58 Year
  Sex: Female

DRUGS (2)
  1. PREGABALIN-RATIOPHARM 50MG HARTKAPSELN [Suspect]
     Active Substance: PREGABALIN
     Indication: POST HERPETIC NEURALGIA
     Dosage: 200 MILLIGRAM DAILY; 50 MILLIGRAM IN THE MORNINGS AND IN THE AFTERNOONS, 100MG AT NIGHTS
     Route: 048
     Dates: start: 201503
  2. PREGABALIN-RATIOPHARM 25MG HARTKAPSELN [Suspect]
     Active Substance: PREGABALIN
     Indication: POST HERPETIC NEURALGIA
     Dosage: 25 MILLIGRAM DAILY; 25MG AT NIGHTS. INTAKE WITH 100MG OF PREGABALIN-RATIOPHARM 50MG HARTKAPSELN
     Route: 048
     Dates: start: 201503

REACTIONS (7)
  - Dysphagia [Unknown]
  - Memory impairment [Unknown]
  - Photopsia [Unknown]
  - Pain [Unknown]
  - Skin burning sensation [Unknown]
  - Visual impairment [Unknown]
  - Off label use [Unknown]

NARRATIVE: CASE EVENT DATE: 2015
